FAERS Safety Report 5841669-4 (Version None)
Quarter: 2008Q3

REPORT INFORMATION
  Report Type: 
  Country: None (occurrence: None)
  Receive Date: 20080812
  Receipt Date: 20080808
  Transmission Date: 20090109
  Serious: Yes (Other)
  Sender: FDA-Public Use
  Company Number: US-AVENTIS-200811678US

PATIENT
  Sex: Female
  Weight: 89.4 kg

DRUGS (6)
  1. KETEK [Suspect]
     Indication: SINUSITIS
     Route: 048
     Dates: start: 20060330, end: 20060413
  2. ASTELIN                            /00884002/ [Concomitant]
     Dosage: DOSE: 137MCG, 2 SPRAYS IN EACH NOSTRIL EVERY 12 HOURS
  3. METHYLPREDNISOLONE [Concomitant]
     Dosage: DOSE: 4MG , TAPER SCALE
     Dates: start: 20060330
  4. ZYRTEC [Concomitant]
     Route: 048
  5. LEVOTHYROXINE SODIUM [Concomitant]
     Route: 048
  6. CELEBREX [Concomitant]
     Dates: end: 20060101

REACTIONS (4)
  - ALANINE AMINOTRANSFERASE INCREASED [None]
  - ASPARTATE AMINOTRANSFERASE INCREASED [None]
  - HEPATIC ENZYME INCREASED [None]
  - HEPATITIS [None]
